FAERS Safety Report 21778819 (Version 1)
Quarter: 2022Q4

REPORT INFORMATION
  Report Type: Report from Study
  Country: FR (occurrence: FR)
  Receive Date: 20221226
  Receipt Date: 20221226
  Transmission Date: 20230113
  Serious: Yes (Other)
  Sender: FDA-Public Use
  Company Number: FR-SA-SAC20221222000491

PATIENT
  Age: 67 Year
  Sex: Female
  Weight: 58 kg

DRUGS (19)
  1. ISATUXIMAB [Suspect]
     Active Substance: ISATUXIMAB
     Indication: Plasma cell myeloma
     Dosage: 570 MG, QD
     Dates: start: 20220725, end: 20220725
  2. ISATUXIMAB [Suspect]
     Active Substance: ISATUXIMAB
     Dosage: 570 MG, QD
     Dates: start: 20220802, end: 20220802
  3. POMALIDOMIDE [Suspect]
     Active Substance: POMALIDOMIDE
     Indication: Plasma cell myeloma
     Dosage: 4 MG, QD
     Dates: start: 20220725, end: 20220725
  4. POMALIDOMIDE [Suspect]
     Active Substance: POMALIDOMIDE
     Dosage: 4 MG, QD
     Dates: start: 20220814, end: 20220814
  5. CARFILZOMIB [Suspect]
     Active Substance: CARFILZOMIB
     Indication: Plasma cell myeloma
     Dosage: 30 MG, QD
     Dates: start: 20220725, end: 20220725
  6. CARFILZOMIB [Suspect]
     Active Substance: CARFILZOMIB
     Dosage: 40 MG, QD
     Dates: start: 20220802, end: 20220802
  7. DEXAMETHASONE [Concomitant]
     Active Substance: DEXAMETHASONE
     Indication: Plasma cell myeloma
     Dosage: 40 MG, QD
     Dates: start: 20220725, end: 20220725
  8. DEXAMETHASONE [Concomitant]
     Active Substance: DEXAMETHASONE
     Dosage: 40 MG, QD
     Dates: start: 20220802, end: 20220802
  9. ELIQUIS [Concomitant]
     Active Substance: APIXABAN
     Dosage: 2.5 UG, BID
     Route: 048
     Dates: start: 20220725
  10. AMOXICILLIN [Concomitant]
     Active Substance: AMOXICILLIN
     Dosage: 500 MG, BID
     Route: 048
     Dates: start: 20220725
  11. VALACYCLOVIR HYDROCHLORIDE [Concomitant]
     Active Substance: VALACYCLOVIR HYDROCHLORIDE
     Dosage: 500 UG, BID
     Route: 048
     Dates: start: 20220725
  12. BACTRIM [Concomitant]
     Active Substance: SULFAMETHOXAZOLE\TRIMETHOPRIM
     Dosage: 800/160 UG  TIW
     Route: 048
     Dates: start: 20220725
  13. LEUCOVORIN CALCIUM [Concomitant]
     Active Substance: LEUCOVORIN CALCIUM
     Dosage: 25 MG, QW
     Route: 048
     Dates: start: 20220725
  14. PANTOPRAZOLE [Concomitant]
     Active Substance: PANTOPRAZOLE
     Dosage: 25 UG, QD (IN THE EVENING)
     Route: 048
     Dates: start: 20220725
  15. CLOPIDOGREL [Concomitant]
     Active Substance: CLOPIDOGREL BISULFATE
     Dosage: 75 UG, QD IN THE MORNING
     Route: 048
     Dates: start: 20220725
  16. TRAMADOL [Concomitant]
     Active Substance: TRAMADOL
     Dosage: 25 UG, QD IN THE MORNING
     Dates: start: 20220725
  17. PRIMPERAN [Concomitant]
     Active Substance: METOCLOPRAMIDE HYDROCHLORIDE
     Dosage: 100 UG, QD
     Route: 048
     Dates: start: 20220725
  18. POLYETHYLENE GLYCOLS [Concomitant]
     Active Substance: POLYETHYLENE GLYCOLS
     Indication: Constipation
     Dosage: UNK
     Route: 048
     Dates: start: 20220725
  19. PHLOROGLUCINOL [Concomitant]
     Active Substance: PHLOROGLUCINOL
     Dosage: UNK
     Dates: start: 20220811

REACTIONS (1)
  - Neutropenia [Recovered/Resolved]

NARRATIVE: CASE EVENT DATE: 20220817
